FAERS Safety Report 10160101 (Version 1)
Quarter: 2014Q2

REPORT INFORMATION
  Report Type: Spontaneous
  Country: US (occurrence: US)
  Receive Date: 20140508
  Receipt Date: 20140508
  Transmission Date: 20141212
  Serious: Yes (Other)
  Sender: FDA-Public Use
  Company Number: 2014SP001376

PATIENT
  Age: 49 Year
  Sex: Female

DRUGS (5)
  1. LATUDA [Suspect]
     Indication: BIPOLAR DISORDER
     Route: 048
     Dates: start: 201404, end: 201404
  2. TRILEPTAL [Concomitant]
     Route: 048
  3. LAMICTAL [Concomitant]
     Route: 048
  4. SEROQUEL [Concomitant]
     Route: 048
  5. KLONOPIN [Concomitant]
     Route: 048

REACTIONS (5)
  - Migraine [Not Recovered/Not Resolved]
  - Staring [Not Recovered/Not Resolved]
  - Akinesia [Not Recovered/Not Resolved]
  - Confusional state [Not Recovered/Not Resolved]
  - Disturbance in attention [Not Recovered/Not Resolved]
